FAERS Safety Report 19413570 (Version 1)
Quarter: 2021Q2

REPORT INFORMATION
  Report Type: Spontaneous
  Country: DE (occurrence: CN)
  Receive Date: 20210614
  Receipt Date: 20210614
  Transmission Date: 20210717
  Serious: Yes (Life-Threatening, Hospitalization, Other)
  Sender: FDA-Public Use
  Company Number: CN-ELI_LILLY_AND_COMPANY-CN202106003930

PATIENT
  Age: 81 Year
  Sex: Female
  Weight: 60 kg

DRUGS (6)
  1. SODIUM CHLORIDE. [Concomitant]
     Active Substance: SODIUM CHLORIDE
     Dosage: 100 ML, DAILY
     Route: 041
     Dates: start: 20210508, end: 20210508
  2. NIVOLUMAB [Suspect]
     Active Substance: NIVOLUMAB
     Indication: SQUAMOUS CELL CARCINOMA OF THE ORAL CAVITY
     Dosage: 200 MG, DAILY
     Route: 041
     Dates: start: 20210508, end: 20210508
  3. ERBITUX [Suspect]
     Active Substance: CETUXIMAB
     Indication: SQUAMOUS CELL CARCINOMA OF THE ORAL CAVITY
     Dosage: 200 MG, DAILY
     Route: 041
     Dates: start: 20210518, end: 20210518
  4. BOANMYCIN HYDROCHLORIDE [Suspect]
     Active Substance: BLEOMYCIN A6 HYDROCHLORIDE
     Indication: SQUAMOUS CELL CARCINOMA OF THE ORAL CAVITY
     Dosage: 8.73 MG, DAILY
     Route: 042
     Dates: start: 20210507
  5. SODIUM CHLORIDE. [Concomitant]
     Active Substance: SODIUM CHLORIDE
     Indication: PRODUCT USED FOR UNKNOWN INDICATION
     Dosage: 4 ML, DAILY
     Route: 041
     Dates: start: 20210507, end: 20210507
  6. SODIUM CHLORIDE. [Concomitant]
     Active Substance: SODIUM CHLORIDE
     Dosage: 250 ML, DAILY
     Route: 041
     Dates: start: 20210518, end: 20210518

REACTIONS (1)
  - Immune-mediated lung disease [Not Recovered/Not Resolved]

NARRATIVE: CASE EVENT DATE: 20210520
